FAERS Safety Report 19462527 (Version 17)
Quarter: 2023Q4

REPORT INFORMATION
  Report Type: Spontaneous
  Country: JP (occurrence: JP)
  Receive Date: 20210625
  Receipt Date: 20231208
  Transmission Date: 20240110
  Serious: Yes (Hospitalization, Other)
  Sender: FDA-Public Use
  Company Number: JP-MTPC-MTPC2021-0015055

PATIENT
  Sex: Female

DRUGS (21)
  1. REMICADE [Suspect]
     Active Substance: INFLIXIMAB
     Indication: Behcet^s syndrome
     Dosage: UNK
     Route: 041
  2. REMICADE [Suspect]
     Active Substance: INFLIXIMAB
     Dosage: UNK
     Route: 041
     Dates: start: 20210615, end: 20210615
  3. REMICADE [Suspect]
     Active Substance: INFLIXIMAB
     Dosage: UNK
     Route: 041
  4. REMICADE [Suspect]
     Active Substance: INFLIXIMAB
     Dosage: UNK
     Route: 041
  5. REMICADE [Suspect]
     Active Substance: INFLIXIMAB
     Dosage: UNK
     Route: 041
  6. REMICADE [Suspect]
     Active Substance: INFLIXIMAB
     Dosage: UNK
     Route: 041
     Dates: start: 20220705, end: 20220705
  7. REMICADE [Suspect]
     Active Substance: INFLIXIMAB
     Dosage: UNK
     Route: 041
  8. REMICADE [Suspect]
     Active Substance: INFLIXIMAB
     Dosage: 400 MILLIGRAM, QD
     Route: 041
  9. REMICADE [Suspect]
     Active Substance: INFLIXIMAB
     Dosage: 500 MILLIGRAM, QD
     Route: 041
  10. REMICADE [Suspect]
     Active Substance: INFLIXIMAB
     Dosage: UNK
     Route: 041
  11. BISOPROLOL FUMARATE [Suspect]
     Active Substance: BISOPROLOL FUMARATE
     Route: 048
  12. NITROGLYCERIN [Concomitant]
     Active Substance: NITROGLYCERIN
     Route: 065
  13. VERAPAMIL HYDROCHLORIDE [Concomitant]
     Active Substance: VERAPAMIL HYDROCHLORIDE
     Route: 048
  14. UNSPECIFIED INGREDIENT [Concomitant]
     Active Substance: UNSPECIFIED INGREDIENT
     Route: 051
  15. UNSPECIFIED INGREDIENT [Concomitant]
     Active Substance: UNSPECIFIED INGREDIENT
     Route: 048
  16. SOLU-CORTEF [Concomitant]
     Active Substance: HYDROCORTISONE SODIUM SUCCINATE
     Route: 065
  17. NICORANDIL [Concomitant]
     Active Substance: NICORANDIL
     Route: 048
  18. ENALAPRIL [Concomitant]
     Active Substance: ENALAPRIL
     Route: 048
  19. IMURAN [Concomitant]
     Active Substance: AZATHIOPRINE
     Route: 065
  20. POLARAMINE [Concomitant]
     Active Substance: DEXCHLORPHENIRAMINE MALEATE
     Route: 048
  21. ALLEGRA [Concomitant]
     Active Substance: FEXOFENADINE HYDROCHLORIDE
     Route: 048

REACTIONS (44)
  - Microvascular coronary artery disease [Unknown]
  - Prinzmetal angina [Unknown]
  - Angina pectoris [Unknown]
  - Meningitis [Unknown]
  - Gingival swelling [Unknown]
  - Vitreous floaters [Unknown]
  - Lymph node pain [Unknown]
  - Eyelid disorder [Unknown]
  - Hyperreflexia [Unknown]
  - Physical deconditioning [Unknown]
  - Tonsillar hypertrophy [Unknown]
  - Vulval ulceration [Unknown]
  - Pyrexia [Recovered/Resolved]
  - Arthralgia [Unknown]
  - Malaise [Unknown]
  - Infusion related reaction [Unknown]
  - Dyspnoea [Unknown]
  - Anaemia [Unknown]
  - Dyspnoea exertional [Unknown]
  - Arthralgia [Unknown]
  - Chest discomfort [Unknown]
  - Stomatitis [Unknown]
  - Nasopharyngitis [Unknown]
  - Cough [Unknown]
  - Dysphonia [Unknown]
  - Headache [Unknown]
  - Hypoaesthesia [Unknown]
  - Oropharyngeal pain [Unknown]
  - Feeling abnormal [Unknown]
  - Weight increased [Unknown]
  - Rash [Unknown]
  - Pruritus [Unknown]
  - Chest pain [Unknown]
  - Oral herpes [Unknown]
  - Eczema [Unknown]
  - Erythema [Unknown]
  - Somnolence [Unknown]
  - Blood pressure decreased [Unknown]
  - Feeling abnormal [Unknown]
  - Arthralgia [Unknown]
  - Myalgia [Unknown]
  - Hypersensitivity [Unknown]
  - Therapeutic product effect decreased [Unknown]
  - No adverse event [Unknown]

NARRATIVE: CASE EVENT DATE: 20210616
